FAERS Safety Report 4266222-8 (Version None)
Quarter: 2004Q1

REPORT INFORMATION
  Report Type: 
  Country: None (occurrence: None)
  Receive Date: 20040106
  Receipt Date: 20031224
  Transmission Date: 20041129
  Serious: Yes (Hospitalization)
  Sender: FDA-Public Use
  Company Number: 2003AP04586

PATIENT
  Age: 59 Year
  Sex: Male

DRUGS (5)
  1. IRESSA [Suspect]
     Indication: LUNG NEOPLASM MALIGNANT
     Dosage: 250 MG DAILY PO
     Route: 048
     Dates: start: 20031101
  2. PAXIL [Concomitant]
  3. NAUZELIN [Concomitant]
  4. SELBEX [Concomitant]
  5. PURSENNID [Concomitant]

REACTIONS (1)
  - MYOCARDIAL INFARCTION [None]
